FAERS Safety Report 16101368 (Version 2)
Quarter: 2019Q2

REPORT INFORMATION
  Report Type: Report from Study
  Country: US (occurrence: US)
  Receive Date: 20190321
  Receipt Date: 20190417
  Transmission Date: 20190711
  Serious: Yes (Other)
  Sender: FDA-Public Use
  Company Number: US-PFIZER INC-2019116749

PATIENT
  Age: 60 Year
  Sex: Female

DRUGS (1)
  1. XELJANZ XR [Suspect]
     Active Substance: TOFACITINIB CITRATE
     Indication: RHEUMATOID ARTHRITIS
     Dosage: 11 MG, 1X/DAY
     Route: 048
     Dates: start: 201811

REACTIONS (9)
  - Therapeutic response unexpected [Unknown]
  - Systemic lupus erythematosus [Unknown]
  - Crohn^s disease [Unknown]
  - Arthralgia [Unknown]
  - Hidradenitis [Unknown]
  - Pre-existing condition improved [Unknown]
  - Rash [Recovered/Resolved]
  - Dyspnoea [Unknown]
  - Breast mass [Unknown]

NARRATIVE: CASE EVENT DATE: 201903
